FAERS Safety Report 17812887 (Version 4)
Quarter: 2023Q1

REPORT INFORMATION
  Report Type: Report from Study
  Country: GB (occurrence: GB)
  Receive Date: 20200521
  Receipt Date: 20230330
  Transmission Date: 20230417
  Serious: Yes (Hospitalization)
  Sender: FDA-Public Use
  Company Number: GB-IPSEN GROUP, RESEARCH AND DEVELOPMENT-2020-06387

PATIENT
  Sex: Female

DRUGS (3)
  1. LANREOTIDE ACETATE [Suspect]
     Active Substance: LANREOTIDE ACETATE
     Indication: Neuroendocrine tumour
     Dosage: 120MG /0.5 ML
     Route: 058
     Dates: end: 202005
  2. LANREOTIDE ACETATE [Suspect]
     Active Substance: LANREOTIDE ACETATE
     Dosage: 120MG /0.5 ML
     Route: 058
     Dates: start: 202006
  3. LANREOTIDE ACETATE [Suspect]
     Active Substance: LANREOTIDE ACETATE
     Dosage: 120MG/0.5ML
     Route: 058

REACTIONS (9)
  - Syncope [Unknown]
  - Adverse event [Unknown]
  - Surgery [Unknown]
  - Blood glucose fluctuation [Unknown]
  - Thirst [Unknown]
  - Steatorrhoea [Unknown]
  - Hypophagia [Unknown]
  - Incontinence [Unknown]
  - Inappropriate schedule of product administration [Unknown]
